FAERS Safety Report 9993620 (Version 1)
Quarter: 2014Q1

REPORT INFORMATION
  Report Type: Spontaneous
  Country: US (occurrence: US)
  Receive Date: 20140310
  Receipt Date: 20140310
  Transmission Date: 20141002
  Serious: No
  Sender: FDA-Public Use
  Company Number: US-AMGEN-USASP2013031461

PATIENT
  Sex: Female

DRUGS (16)
  1. SENSIPAR [Suspect]
     Indication: PRODUCT USED FOR UNKNOWN INDICATION
     Dosage: 30 MG, QD
     Dates: start: 201302
  2. DIOVAN [Concomitant]
  3. ALLOPURINOL [Concomitant]
  4. LIPITOR [Concomitant]
  5. SYNTHROID [Concomitant]
  6. COLCRYS [Concomitant]
  7. ZEMPLAR [Concomitant]
  8. KLOR-CON [Concomitant]
  9. TORSEMIDE [Concomitant]
  10. MAGNESIUM [Concomitant]
  11. NEPHROVITE [Concomitant]
  12. VITAMIN B C COMPLEX [Concomitant]
  13. AMLODIPINE [Concomitant]
  14. ALPHA LIPOIC ACID [Concomitant]
  15. ASPIRIN [Concomitant]
  16. ESTRADIOL TRANSDERMAL [Concomitant]

REACTIONS (3)
  - Gout [Recovering/Resolving]
  - Walking aid user [Recovered/Resolved]
  - Pain [Recovering/Resolving]
